FAERS Safety Report 14625332 (Version 1)
Quarter: 2018Q1

REPORT INFORMATION
  Report Type: Spontaneous
  Country: US (occurrence: US)
  Receive Date: 20180312
  Receipt Date: 20180312
  Transmission Date: 20180509
  Serious: No
  Sender: FDA-Public Use
  Company Number: US-ABBVIE-18P-163-2212391-00

PATIENT
  Age: 34 Year
  Sex: Female
  Weight: 70.37 kg

DRUGS (3)
  1. NORETHINDRONE. [Suspect]
     Active Substance: NORETHINDRONE
     Indication: ENDOMETRIOSIS
     Route: 048
     Dates: start: 20171011
  2. PRENATAL VITAMINS [Concomitant]
     Active Substance: VITAMINS
     Indication: PLANNING TO BECOME PREGNANT
     Route: 065
     Dates: start: 201712
  3. LUPRON DEPOT [Suspect]
     Active Substance: LEUPROLIDE ACETATE
     Indication: ENDOMETRIOSIS
     Route: 030
     Dates: start: 20171011

REACTIONS (6)
  - Metrorrhagia [Not Recovered/Not Resolved]
  - Metrorrhagia [Recovered/Resolved]
  - Hot flush [Recovering/Resolving]
  - Headache [Recovering/Resolving]
  - Abdominal pain [Not Recovered/Not Resolved]
  - Mood swings [Recovering/Resolving]

NARRATIVE: CASE EVENT DATE: 201710
